FAERS Safety Report 14487645 (Version 1)
Quarter: 2018Q1

REPORT INFORMATION
  Report Type: Spontaneous
  Country: ES (occurrence: ES)
  Receive Date: 20180205
  Receipt Date: 20180205
  Transmission Date: 20180509
  Serious: Yes (Death)
  Sender: FDA-Public Use
  Company Number: ES-PFIZER INC-2018048757

PATIENT
  Age: 87 Year
  Sex: Male

DRUGS (9)
  1. PARACETAMOL [Concomitant]
     Active Substance: ACETAMINOPHEN
     Dosage: 1 G, 3X/DAY (1 G/8 HOURS)
     Route: 042
     Dates: start: 20170418
  2. AMLODIPINE [Concomitant]
     Active Substance: AMLODIPINE BESYLATE
     Dosage: 1 DF, 1X/DAY
     Route: 048
     Dates: start: 20170418
  3. TAZOCEL [Concomitant]
     Active Substance: PIPERACILLIN SODIUM\TAZOBACTAM SODIUM
     Dosage: 4 G, 3X/DAY (4 G/8 HOURS)
     Route: 042
     Dates: start: 20170418
  4. PANTOPRAZOL [Concomitant]
     Active Substance: PANTOPRAZOLE SODIUM
     Dosage: 1 DF, 1X/DAY
     Route: 048
     Dates: start: 20170418
  5. ADIRO [Concomitant]
     Active Substance: ASPIRIN
     Dosage: 1 DF, DAILY
     Route: 048
     Dates: start: 20170418
  6. ENOXAPARINA [Concomitant]
     Active Substance: ENOXAPARIN
     Dosage: 50 MG, 2X/DAY (50 MG/12 HOURS)
     Route: 058
     Dates: start: 20170418
  7. ATORVASTATINA [Concomitant]
     Active Substance: ATORVASTATIN
     Dosage: 80 UNIT UNKNOWN, 1X/DAY (0-0-1)
     Route: 048
     Dates: start: 20170418
  8. FUROSEMIDA [Concomitant]
     Active Substance: FUROSEMIDE
     Dosage: 40 UNITS UNKNOWN, 2X/DAY (1-0-1)
     Route: 048
     Dates: start: 20170418
  9. METHYLPREDNISOLONE SODIUM SUCCINATE. [Suspect]
     Active Substance: METHYLPREDNISOLONE SODIUM SUCCINATE
     Dosage: 16 MG, 1X/DAY
     Route: 042
     Dates: start: 20170418, end: 20170424

REACTIONS (2)
  - Acute pulmonary oedema [Fatal]
  - Hypertensive crisis [Fatal]

NARRATIVE: CASE EVENT DATE: 20170424
